FAERS Safety Report 4796851-4 (Version None)
Quarter: 2005Q3

REPORT INFORMATION
  Report Type: 
  Country: None (occurrence: None)
  Receive Date: 20050916
  Receipt Date: 20041228
  Transmission Date: 20060218
  Serious: Yes (Other)
  Sender: FDA-Public Use
  Company Number: US-JNJFOC-20041207411

PATIENT
  Age: 2 Year
  Sex: Female
  Weight: 15.8759 kg

DRUGS (2)
  1. TOPAMAX [Suspect]
     Indication: DRUG USE FOR UNKNOWN INDICATION
  2. DIMETAPP [Suspect]
     Indication: NASOPHARYNGITIS

REACTIONS (2)
  - CONVULSION [None]
  - NASOPHARYNGITIS [None]
